FAERS Safety Report 23486146 (Version 6)
Quarter: 2024Q3

REPORT INFORMATION
  Report Type: Spontaneous
  Country: CA (occurrence: CA)
  Receive Date: 20240206
  Receipt Date: 20240723
  Transmission Date: 20241017
  Serious: Yes (Other)
  Sender: CELLTRION
  Company Number: CA-CELLTRION INC.-2023CA011249

PATIENT

DRUGS (9)
  1. INFLECTRA [Suspect]
     Active Substance: INFLIXIMAB-DYYB
     Indication: Crohn^s disease
     Dosage: 5 MG/KG INDUCTION WEEKS 0, 2, 6 MAINTENANCE Q 8 WEEKS
     Route: 042
     Dates: start: 20230630
  2. INFLECTRA [Suspect]
     Active Substance: INFLIXIMAB-DYYB
     Dosage: 5 MG/KG INDUCTION WEEKS 0, 2, 6 MAINTENANCE Q 8 WEEKS
     Route: 042
     Dates: start: 20231201
  3. INFLECTRA [Suspect]
     Active Substance: INFLIXIMAB-DYYB
     Dosage: 10 MG/KG (735 MG), EVERY 8 WEEKS
     Route: 042
     Dates: start: 20240126
  4. INFLECTRA [Suspect]
     Active Substance: INFLIXIMAB-DYYB
     Dosage: 10 MG/KG (735 MG), EVERY 8 WEEKS
     Route: 042
     Dates: start: 20240126
  5. INFLECTRA [Suspect]
     Active Substance: INFLIXIMAB-DYYB
     Dosage: 10 MG/KG (735 MG), EVERY 8 WEEKS
     Route: 042
     Dates: start: 20240126
  6. INFLECTRA [Suspect]
     Active Substance: INFLIXIMAB-DYYB
     Dosage: 10 MG/KG (735 MG), EVERY 8 WEEK
     Route: 042
     Dates: start: 20240322
  7. INFLECTRA [Suspect]
     Active Substance: INFLIXIMAB-DYYB
     Dosage: 10 MG/KG, EVERY 8 WEEKS
     Route: 042
     Dates: start: 20240517, end: 20240517
  8. PREDNISONE [Concomitant]
     Active Substance: PREDNISONE
     Dosage: 40 MG, DAILY,TAPERING BY 5 MG WEEKLY, UNTIL FINISHED (1DF)
  9. SOLU-MEDROL [Concomitant]
     Active Substance: METHYLPREDNISOLONE SODIUM SUCCINATE
     Indication: Premedication
     Dosage: 100 MG
     Dates: start: 20240322, end: 20240322

REACTIONS (19)
  - Syncope [Recovered/Resolved]
  - Presyncope [Recovered/Resolved]
  - Urticaria [Recovered/Resolved]
  - Nausea [Recovered/Resolved]
  - Pruritus [Recovered/Resolved]
  - Loss of consciousness [Recovered/Resolved]
  - Drug level decreased [Unknown]
  - Drug specific antibody present [Unknown]
  - Feeling cold [Recovered/Resolved]
  - Chills [Recovered/Resolved]
  - Blood pressure systolic increased [Not Recovered/Not Resolved]
  - Blood pressure increased [Recovering/Resolving]
  - Heart rate increased [Recovered/Resolved]
  - Dizziness [Recovered/Resolved]
  - Swelling [Recovered/Resolved]
  - Nausea [Recovered/Resolved]
  - Dizziness [Recovered/Resolved]
  - Off label use [Unknown]
  - Intentional product use issue [Unknown]

NARRATIVE: CASE EVENT DATE: 20230101
